FAERS Safety Report 23481454 (Version 2)
Quarter: 2024Q1

REPORT INFORMATION
  Report Type: Spontaneous
  Country: AU (occurrence: AU)
  Receive Date: 20240205
  Receipt Date: 20240318
  Transmission Date: 20240410
  Serious: Yes (Hospitalization)
  Sender: FDA-Public Use
  Company Number: AU-BEH-2024167323

PATIENT
  Age: 63 Year
  Sex: Male
  Weight: 86 kg

DRUGS (22)
  1. HUMAN IMMUNOGLOBULIN G [Suspect]
     Active Substance: HUMAN IMMUNOGLOBULIN G
     Indication: Immunodeficiency common variable
     Dosage: UNK
     Route: 042
     Dates: start: 20240103, end: 20240103
  2. HUMAN IMMUNOGLOBULIN G [Suspect]
     Active Substance: HUMAN IMMUNOGLOBULIN G
     Dosage: UNK
     Route: 065
     Dates: start: 20240214
  3. TACROLIMUS [Concomitant]
     Active Substance: TACROLIMUS
     Indication: Immunosuppression
     Dosage: 4 MILLIGRAM, BID
  4. MYCOPHENOLATE MOFETIL [Concomitant]
     Active Substance: MYCOPHENOLATE MOFETIL
     Indication: Immunosuppression
     Dosage: 250 MILLIGRAM, BID
  5. PREDNISOLONE [Concomitant]
     Active Substance: PREDNISOLONE
     Indication: Immunosuppression
     Dosage: 7.5 MILLIGRAM, QD
  6. PREDNISOLONE [Concomitant]
     Active Substance: PREDNISOLONE
     Dosage: 25 MILLIGRAM, QW
     Route: 065
  7. PREDNISOLONE [Concomitant]
     Active Substance: PREDNISOLONE
     Dosage: 25 MILLIGRAM, QMT
     Route: 065
  8. HUMAN IMMUNOGLOBULIN G [Concomitant]
     Active Substance: HUMAN IMMUNOGLOBULIN G
     Indication: Glioma
  9. ATOVAQUONE [Concomitant]
     Active Substance: ATOVAQUONE
     Indication: Prophylaxis
     Dosage: 1500 MILLIGRAM, QD
     Route: 065
  10. AZITHROMYCIN [Concomitant]
     Active Substance: AZITHROMYCIN
     Indication: Prophylaxis
     Dosage: 250 MILLIGRAM, TIW (MONDAY, WEDNESDAY, AND FRIDAY)
  11. NUCALA [Concomitant]
     Active Substance: MEPOLIZUMAB
     Indication: Prophylaxis
     Dosage: UNK, QMT
     Route: 065
  12. PANTOPRAZOLE [Concomitant]
     Active Substance: PANTOPRAZOLE
     Dosage: 40 MILLIGRAM, QD
     Route: 065
  13. ROSUVASTATIN [Concomitant]
     Active Substance: ROSUVASTATIN
     Dosage: 5 MILLIGRAM, QD
     Route: 065
  14. ROSUVASTATIN [Concomitant]
     Active Substance: ROSUVASTATIN
     Dosage: 10 MILLIGRAM, QD
     Route: 065
  15. IRBESARTAN [Concomitant]
     Active Substance: IRBESARTAN
     Dosage: 300 MILLIGRAM, QD
     Route: 065
  16. LERCANIDIPINE [Concomitant]
     Active Substance: LERCANIDIPINE
     Dosage: 20 MILLIGRAM, QD
     Route: 065
  17. MOXONIDINE [Concomitant]
     Active Substance: MOXONIDINE
     Dosage: 200 MILLIGRAM, QD (NOCTE)
     Route: 065
  18. CALTRATE [Concomitant]
     Active Substance: CALCIUM CARBONATE
     Dosage: 600 MILLIGRAM, QD
     Route: 065
  19. OSTEVIT D [Concomitant]
     Dosage: 1 DOSAGE FORM, QD
     Route: 065
  20. BIOMAG [MAGNESIUM] [Concomitant]
     Dosage: 1 DOSAGE FORM, BID
     Route: 065
  21. ZOLEDRONIC ACID [Concomitant]
     Active Substance: ZOLEDRONIC ACID
     Dosage: YEARLY
     Route: 065
  22. FERROUS SULFATE [Concomitant]
     Active Substance: FERROUS SULFATE
     Dosage: 325 MILLIGRAM, QD
     Route: 065

REACTIONS (7)
  - Bacteraemia [Recovered/Resolved]
  - Gram stain positive [Recovered/Resolved]
  - Chills [Recovered/Resolved]
  - Pyrexia [Recovered/Resolved]
  - Somnolence [Recovered/Resolved]
  - Fatigue [Recovered/Resolved]
  - Chills [Not Recovered/Not Resolved]

NARRATIVE: CASE EVENT DATE: 20240103
